FAERS Safety Report 7252498-1 (Version None)
Quarter: 2011Q1

REPORT INFORMATION
  Report Type: 
  Country: None (occurrence: None)
  Receive Date: 20110129
  Receipt Date: 20100401
  Transmission Date: 20110831
  Serious: No
  Sender: FDA-Public Use
  Company Number: US-ABBOTT-09P-163-0568423-00

PATIENT
  Sex: Female
  Weight: 72.64 kg

DRUGS (7)
  1. HUMIRA [Suspect]
     Indication: PSORIASIS
     Route: 058
     Dates: start: 20070101
  2. VITAMIN D [Concomitant]
     Indication: VITAMIN SUPPLEMENTATION
  3. NEBULIZER [Concomitant]
     Indication: ASTHMA
  4. ASACOL [Concomitant]
     Indication: CROHN'S DISEASE
     Route: 048
  5. ACTONEL [Concomitant]
     Indication: OSTEOPOROSIS PROPHYLAXIS
  6. HUMIRA [Suspect]
     Indication: CROHN'S DISEASE
  7. INHALER [Concomitant]
     Indication: ASTHMA

REACTIONS (4)
  - NASOPHARYNGITIS [None]
  - PRURITUS [None]
  - RASH [None]
  - ERYTHEMA [None]
